FAERS Safety Report 8414193-2 (Version None)
Quarter: 2012Q2

REPORT INFORMATION
  Report Type: 
  Country: None (occurrence: None)
  Receive Date: 20120605
  Receipt Date: 20120601
  Transmission Date: 20120825
  Serious: Yes (Other)
  Sender: FDA-Public Use
  Company Number: CA-AMGEN-CANSP2012032601

PATIENT
  Age: 48 Year
  Sex: Female
  Weight: 61.7 kg

DRUGS (3)
  1. ENBREL [Suspect]
     Indication: PSORIASIS
     Dosage: 50 MG, 2 TIMES/WK
     Route: 058
     Dates: start: 20101031, end: 20120523
  2. VITAMIN B12                        /00056201/ [Concomitant]
     Indication: ROUTINE HEALTH MAINTENANCE
     Dosage: 1000 MUG, QMO
     Dates: start: 20120511
  3. ENBREL [Suspect]
     Dosage: 50 MG, 2 TIMES/WK
     Dates: start: 20101013

REACTIONS (4)
  - GASTROINTESTINAL INFECTION [None]
  - PLATELET COUNT INCREASED [None]
  - BLOOD TEST ABNORMAL [None]
  - DIARRHOEA HAEMORRHAGIC [None]
